FAERS Safety Report 7108797-7 (Version None)
Quarter: 2010Q4

REPORT INFORMATION
  Report Type: 
  Country: None (occurrence: None)
  Receive Date: 20101117
  Receipt Date: 20101105
  Transmission Date: 20110411
  Serious: Yes (Other)
  Sender: FDA-Public Use
  Company Number: BR-ACTELION-A-CH2010-39290

PATIENT
  Sex: Female

DRUGS (3)
  1. BOSENTAN TABLET 125 MG ROW [Suspect]
     Indication: PULMONARY ARTERIAL HYPERTENSION
     Dosage: 125 MG, BID
     Route: 048
     Dates: start: 20100607, end: 20100810
  2. PREDNISONE [Concomitant]
  3. CHLOROQUINE PHOSPHATE [Concomitant]

REACTIONS (1)
  - PREGNANCY [None]
